FAERS Safety Report 8396492-6 (Version None)
Quarter: 2012Q2

REPORT INFORMATION
  Report Type: 
  Country: None (occurrence: None)
  Receive Date: 20120530
  Receipt Date: 20120523
  Transmission Date: 20120825
  Serious: Yes (Death, Hospitalization)
  Sender: FDA-Public Use
  Company Number: DE-ACTELION-A-US2009-26673

PATIENT

DRUGS (8)
  1. REVATIO [Concomitant]
  2. MARCUMAR [Concomitant]
  3. VENTAVIS [Suspect]
     Indication: PULMONARY ARTERIAL HYPERTENSION
     Dosage: 5 MCG X6/DAY
     Route: 055
     Dates: start: 20070823, end: 20090701
  4. AVELOX [Concomitant]
  5. AMLODIPINE [Concomitant]
  6. TRACLEER [Concomitant]
     Indication: PULMONARY ARTERIAL HYPERTENSION
     Dosage: 250 MG, QD
     Route: 048
     Dates: start: 20070101
  7. ANTIBIOTICS [Concomitant]
  8. OXYGEN [Concomitant]

REACTIONS (8)
  - VENTRICULAR FIBRILLATION [None]
  - RESPIRATORY TRACT INFECTION [None]
  - DISEASE PROGRESSION [None]
  - RIGHT VENTRICULAR FAILURE [None]
  - BRONCHITIS [None]
  - PULMONARY ARTERIAL HYPERTENSION [None]
  - CONDITION AGGRAVATED [None]
  - HAEMOPERFUSION [None]
